FAERS Safety Report 5418463-1 (Version None)
Quarter: 2007Q3

REPORT INFORMATION
  Report Type: 
  Country: None (occurrence: None)
  Receive Date: 20070817
  Receipt Date: 20070807
  Transmission Date: 20080115
  Serious: Yes (Life-Threatening, Hospitalization)
  Sender: FDA-Public Use
  Company Number: DE-ELI_LILLY_AND_COMPANY-DE200707001324

PATIENT
  Age: 68 Year
  Sex: Female

DRUGS (14)
  1. CYMBALTA [Suspect]
     Indication: DEPRESSION
     Dosage: 60 MG, DAILY (1/D)
     Route: 048
     Dates: start: 20070605, end: 20070614
  2. CYMBALTA [Suspect]
     Dosage: 60 MG, DAILY (1/D)
     Route: 048
     Dates: start: 20070526, end: 20070604
  3. LEVOTHYROXINE SODIUM [Concomitant]
     Dosage: UNK, UNKNOWN
     Route: 065
     Dates: start: 20070605, end: 20070614
  4. LEVOTHYROXINE SODIUM [Concomitant]
     Dosage: 125 UG, EACH MORNING
     Route: 065
     Dates: end: 20070604
  5. BISOPROLOL [Concomitant]
     Indication: HYPERTENSION
     Dosage: UNK, UNKNOWN
     Route: 065
     Dates: start: 20070605, end: 20070614
  6. BISOPROLOL [Concomitant]
     Dosage: 5 MG, EACH MORNING
     Route: 065
     Dates: end: 20070604
  7. BISOPROLOL [Concomitant]
     Dosage: 2.5 MG, AT NOON
     Route: 065
     Dates: end: 20070604
  8. BISOPROLOL [Concomitant]
     Dosage: 2.5 MG, EACH EVENING
     Route: 065
     Dates: end: 20070604
  9. RAMIPRIL [Concomitant]
     Indication: HYPERTENSION
     Dates: start: 20070605, end: 20070614
  10. RAMIPRIL [Concomitant]
     Dosage: 5 MG, EACH MORNING
     Route: 065
     Dates: end: 20070604
  11. RAMIPRIL [Concomitant]
     Dosage: 5 MG, EACH EVENING
     Route: 065
     Dates: end: 20070604
  12. BROMAZANIL [Concomitant]
     Dosage: UNK, UNKNOWN
     Route: 065
     Dates: end: 20070604
  13. TAVOR [Concomitant]
     Dosage: UNK, UNKNOWN
     Route: 065
  14. HYDROCHLOROTHIAZIDE [Concomitant]
     Indication: HYPERTENSION
     Dosage: 12.5 MG, EACH MORNING
     Route: 065
     Dates: end: 20070605

REACTIONS (9)
  - ANOREXIA [None]
  - BLOOD CREATINE PHOSPHOKINASE INCREASED [None]
  - BLOOD POTASSIUM DECREASED [None]
  - FATIGUE [None]
  - GAIT DISTURBANCE [None]
  - GOITRE [None]
  - HYPERTENSION [None]
  - HYPONATRAEMIA [None]
  - SOMNOLENCE [None]
